FAERS Safety Report 19938093 (Version 2)
Quarter: 2021Q4

REPORT INFORMATION
  Report Type: Spontaneous
  Country: US (occurrence: US)
  Receive Date: 20211011
  Receipt Date: 20211219
  Transmission Date: 20220303
  Serious: Yes (Other)
  Sender: FDA-Public Use
  Company Number: US-JNJFOC-20210925214

PATIENT
  Age: 27 Year
  Sex: Male

DRUGS (4)
  1. REMICADE [Suspect]
     Active Substance: INFLIXIMAB
     Indication: Crohn^s disease
     Route: 042
     Dates: start: 20091222
  2. REMICADE [Suspect]
     Active Substance: INFLIXIMAB
     Route: 042
     Dates: start: 20210107
  3. TYLENOL [Concomitant]
     Active Substance: ACETAMINOPHEN
  4. PREDNISONE [Concomitant]
     Active Substance: PREDNISONE

REACTIONS (13)
  - Pyrexia [Recovered/Resolved]
  - Ileostomy [Unknown]
  - Bone marrow transplant [Unknown]
  - Weight decreased [Unknown]
  - Influenza like illness [Unknown]
  - Glossodynia [Unknown]
  - Oropharyngeal pain [Unknown]
  - Swelling [Unknown]
  - Swollen tongue [Unknown]
  - Vomiting [Unknown]
  - Candida infection [Unknown]
  - Infusion related reaction [Unknown]
  - Drug hypersensitivity [Unknown]

NARRATIVE: CASE EVENT DATE: 20090101
